FAERS Safety Report 7599734-X (Version None)
Quarter: 2011Q2

REPORT INFORMATION
  Report Type: 
  Country: None (occurrence: None)
  Receive Date: 20110629
  Receipt Date: 20110616
  Transmission Date: 20111010
  Serious: Yes (Death, Hospitalization, Other)
  Sender: FDA-Public Use
  Company Number: 1000021688

PATIENT
  Age: 76 Year
  Sex: Male

DRUGS (9)
  1. ROFLUMILAST (ROFLUMILAST) (500 MICROGRAM, TABLETS) [Suspect]
     Indication: CHRONIC OBSTRUCTIVE PULMONARY DISEASE
     Dosage: 500 MCG (500 MCG, 1 IN 1 D), ORAL
     Route: 048
     Dates: start: 20110201
  2. SERETIDE (FLUTICASONE, SALMETEROL) (FLUTICASONE, SALMETEROL) [Concomitant]
  3. OXYGEN (OXYGEN) (OXYGEN) [Concomitant]
  4. ALDACTONE [Concomitant]
  5. SPIRIVA (TIOTROPIUM BROMIDE) (TIOTROPIUM BROMIDE) [Concomitant]
  6. PANTOPRAZOLE (PANTOPRAZOLE) (PANTOPRAZOLE) [Concomitant]
  7. CLOPIDOGREL (CLOPIDOGREL) (CLOPIDOGREL) [Concomitant]
  8. SEGURIL (FUROSEMIDE) (FUROSEMIDE) [Concomitant]
  9. LANTUS (INSULIN GLARGINE) (INSULIN GLARGINE) [Concomitant]

REACTIONS (9)
  - BLOOD GLUCOSE INCREASED [None]
  - ENCEPHALOPATHY [None]
  - GLOMERULAR FILTRATION RATE DECREASED [None]
  - RESPIRATORY FAILURE [None]
  - CONDITION AGGRAVATED [None]
  - INFLUENZA LIKE ILLNESS [None]
  - CHRONIC OBSTRUCTIVE PULMONARY DISEASE [None]
  - DISCOMFORT [None]
  - EYE SWELLING [None]
